FAERS Safety Report 5818411-6 (Version None)
Quarter: 2008Q3

REPORT INFORMATION
  Report Type: 
  Country: None (occurrence: None)
  Receive Date: 20080716
  Receipt Date: 20080701
  Transmission Date: 20090109
  Serious: Yes (Hospitalization)
  Sender: FDA-Public Use
  Company Number: 2008S1011520

PATIENT
  Age: 38 Year
  Sex: Male
  Weight: 100 kg

DRUGS (13)
  1. METHOTREXATE [Suspect]
     Indication: RHEUMATOID ARTHRITIS
     Dosage: 12.5 MG;WEEKLY;ORAL
     Route: 048
     Dates: start: 20080527
  2. HUMIRA [Suspect]
     Indication: RHEUMATOID ARTHRITIS
     Dosage: 40 MG;EVERY OTHER WEEK; SUBCUTANEOUS
     Route: 058
     Dates: start: 20080527
  3. IMMUNOGLOBULIN HUMAN [Concomitant]
  4. ANTI-TETANUS [Concomitant]
  5. OXYCODONE HCL [Concomitant]
  6. BUPROPION HYDROCHLORIDE [Concomitant]
  7. HYDROXYCHLOROQUINE SULFATE [Concomitant]
  8. MELOXICAM [Concomitant]
  9. NYSTATIN [Concomitant]
  10. FISH OIL [Concomitant]
  11. MULTIVITAMIN /00097801/ [Concomitant]
  12. FOLIC ACID [Concomitant]
  13. FLOXACILLIN SODIUM [Concomitant]

REACTIONS (2)
  - ARTHRITIS BACTERIAL [None]
  - PALINDROMIC RHEUMATISM [None]
